FAERS Safety Report 6520389-7 (Version None)
Quarter: 2009Q4

REPORT INFORMATION
  Report Type: 
  Country: None (occurrence: None)
  Receive Date: 20091229
  Receipt Date: 20090505
  Transmission Date: 20100525
  Serious: Yes (Hospitalization)
  Sender: FDA-Public Use
  Company Number: GB-JNJFOC-20090402402

PATIENT
  Sex: Male

DRUGS (7)
  1. REMICADE [Suspect]
     Dosage: AT WEEK 46 (MOST RECENT INFUSION)
     Route: 042
  2. REMICADE [Suspect]
     Indication: PSORIATIC ARTHROPATHY
     Route: 042
  3. CO-CODAMOL [Concomitant]
     Indication: ANALGESIC THERAPY
  4. METHOTREXATE [Concomitant]
     Indication: PSORIATIC ARTHROPATHY
  5. FOLIC ACID [Concomitant]
     Indication: PROPHYLAXIS
  6. FEXOFENADINE [Concomitant]
     Indication: SEASONAL ALLERGY
  7. DERMOL [Concomitant]
     Indication: PSORIASIS

REACTIONS (2)
  - MENINGITIS [None]
  - SEPSIS [None]
